FAERS Safety Report 23889667 (Version 1)
Quarter: 2024Q2

REPORT INFORMATION
  Report Type: Spontaneous
  Country: US (occurrence: None)
  Receive Date: 20240523
  Receipt Date: 20240523
  Transmission Date: 20240716
  Serious: No
  Sender: FDA-Public Use
  Company Number: None

PATIENT

DRUGS (2)
  1. CEPHALEXIN HYDROCHLORIDE [Suspect]
     Active Substance: CEPHALEXIN HYDROCHLORIDE
     Dosage: 250 MG /5 ML   SUSPENSION ORAL
     Route: 048
  2. CEPHALEXIN HYDROCHLORIDE [Suspect]
     Active Substance: CEPHALEXIN HYDROCHLORIDE
     Dosage: 125 M/ML  SUSPENSION ORAL

REACTIONS (6)
  - Product preparation issue [None]
  - Incorrect dose administered [None]
  - Product dispensing error [None]
  - Product label confusion [None]
  - Product label issue [None]
  - Product quality issue [None]
